FAERS Safety Report 5313536-6 (Version None)
Quarter: 2007Q2

REPORT INFORMATION
  Report Type: 
  Country: None (occurrence: None)
  Receive Date: 20070501
  Receipt Date: 20060905
  Transmission Date: 20071010
  Serious: No
  Sender: FDA-Public Use
  Company Number: 2006UW17372

PATIENT
  Sex: Female

DRUGS (5)
  1. ENTOCORT EC [Suspect]
     Indication: COLITIS COLLAGENOUS
     Route: 048
     Dates: start: 20060725
  2. ATENOLOL [Concomitant]
  3. SYNTHROID [Concomitant]
  4. LORAZEPAM [Concomitant]
  5. HYDROCODONE [Concomitant]

REACTIONS (7)
  - DERMATITIS ACNEIFORM [None]
  - INFECTION IN AN IMMUNOCOMPROMISED HOST [None]
  - MEDICATION ERROR [None]
  - OVERDOSE [None]
  - SKIN DISCOLOURATION [None]
  - VIRAL INFECTION [None]
  - WHITE BLOOD CELL COUNT DECREASED [None]
